FAERS Safety Report 24841589 (Version 1)
Quarter: 2025Q1

REPORT INFORMATION
  Report Type: Spontaneous
  Country: US (occurrence: US)
  Receive Date: 20250114
  Receipt Date: 20250114
  Transmission Date: 20250409
  Serious: Yes (Death, Life-Threatening, Other)
  Sender: DR REDDYS
  Company Number: None

PATIENT
  Age: 80 Year
  Sex: Female

DRUGS (1)
  1. METFORMIN [Suspect]
     Active Substance: METFORMIN HYDROCHLORIDE
     Indication: Product used for unknown indication

REACTIONS (8)
  - Septic shock [Fatal]
  - Pneumonia [Fatal]
  - Respiratory failure [Fatal]
  - Enterobacter infection [Fatal]
  - Cholecystitis acute [Fatal]
  - Acute kidney injury [Unknown]
  - Acidosis [Unknown]
  - Hepatitis A [Unknown]
